FAERS Safety Report 21857370 (Version 1)
Quarter: 2023Q1

REPORT INFORMATION
  Report Type: Spontaneous
  Country: FR (occurrence: FR)
  Receive Date: 20230113
  Receipt Date: 20230113
  Transmission Date: 20230418
  Serious: Yes (Life-Threatening)
  Sender: FDA-Public Use
  Company Number: FR-AFSSAPS-BX20225459

PATIENT
  Age: 24 Year
  Sex: Female

DRUGS (2)
  1. NOREPINEPHRINE [Suspect]
     Active Substance: NOREPINEPHRINE
     Indication: Product administration error
     Dosage: 4 MILLIGRAM, IN TOTAL
     Route: 040
     Dates: start: 20221010, end: 20221010
  2. ONDANSETRON [Concomitant]
     Active Substance: ONDANSETRON
     Indication: Procedural nausea
     Dosage: UNK
     Route: 040
     Dates: start: 20221010, end: 20221010

REACTIONS (4)
  - Stress cardiomyopathy [Recovered/Resolved]
  - Wrong product administered [Recovered/Resolved]
  - Tachycardia [Recovered/Resolved]
  - Hypertension [Recovered/Resolved]

NARRATIVE: CASE EVENT DATE: 20221010
